FAERS Safety Report 6679769-1 (Version None)
Quarter: 2010Q2

REPORT INFORMATION
  Report Type: 
  Country: None (occurrence: None)
  Receive Date: 20100413
  Receipt Date: 20091117
  Transmission Date: 20101027
  Serious: No
  Sender: FDA-Public Use
  Company Number: US-ASTRAZENECA-2009SE27117

PATIENT
  Age: 68 Year
  Sex: Male

DRUGS (8)
  1. ATENOLOL [Suspect]
     Indication: ARRHYTHMIA
  2. LIPITOR [Suspect]
     Indication: BLOOD CHOLESTEROL INCREASED
  3. GEMFIBROZIL [Suspect]
     Indication: BLOOD CHOLESTEROL INCREASED
  4. NADOLOL [Concomitant]
     Indication: ARRHYTHMIA
  5. METRONIDAZOLE [Concomitant]
     Indication: THYROID DISORDER
  6. ASPIRIN [Concomitant]
  7. VITAMIN D [Concomitant]
  8. ZANTAC [Concomitant]

REACTIONS (3)
  - ARRHYTHMIA [None]
  - CHEST PAIN [None]
  - DRUG INTOLERANCE [None]
